FAERS Safety Report 5224980-X (Version None)
Quarter: 2007Q1

REPORT INFORMATION
  Report Type: 
  Country: None (occurrence: None)
  Receive Date: 20070126
  Receipt Date: 20070115
  Transmission Date: 20070707
  Serious: Yes (Hospitalization, Other)
  Sender: FDA-Public Use
  Company Number: FRWYE196517JAN07

PATIENT
  Age: 52 Year
  Sex: Female

DRUGS (3)
  1. EFFEXOR [Suspect]
     Dosage: OVERDOSE AMOUNT: 2500 MG
     Route: 048
     Dates: start: 20010701, end: 20010701
  2. ALCOHOL (ETHANOL) [Suspect]
     Route: 048
     Dates: start: 20010701, end: 20010701
  3. CLORAZEPATE DIPOTASSIUM [Suspect]
     Dosage: OVERDOSE AMOUNT: 750 MG
     Route: 048
     Dates: start: 20010701, end: 20010701

REACTIONS (5)
  - BALANCE DISORDER [None]
  - HEART RATE INCREASED [None]
  - HYPOTHERMIA [None]
  - MULTIPLE DRUG OVERDOSE [None]
  - RHABDOMYOLYSIS [None]
